FAERS Safety Report 8339512 (Version 9)
Quarter: 2013Q3

REPORT INFORMATION
  Report Type: Report from Study
  Country: DE (occurrence: DE)
  Receive Date: 20120117
  Receipt Date: 20130822
  Transmission Date: 20140515
  Serious: Yes (Hospitalization)
  Sender: FDA-Public Use
  Company Number: DE-UCBSA-049473

PATIENT
  Sex: Male
  Weight: 90 kg

DRUGS (11)
  1. CERTOLIZUMAB PEGOL [Suspect]
     Indication: RHEUMATOID ARTHRITIS
     Dosage: 3X400 MG
     Route: 058
     Dates: start: 20111123, end: 20111219
  2. CERTOLIZUMAB PEGOL [Suspect]
     Indication: RHEUMATOID ARTHRITIS
     Dosage: NO OF DOSES RECEIVED: 1
     Route: 058
     Dates: start: 20120118, end: 20120201
  3. NITROFURANTOIN [Concomitant]
     Indication: URINARY TRACT INFECTION
     Dates: start: 201112
  4. L-THYROXINE [Concomitant]
     Indication: THYROID DISORDER
  5. BISOPROLOL [Concomitant]
     Indication: HYPERTENSION
  6. APROVEL [Concomitant]
     Indication: HYPERTENSION
  7. OMEP [Concomitant]
     Indication: GASTROOESOPHAGEAL REFLUX DISEASE
  8. METHOTREXATE [Concomitant]
     Indication: RHEUMATOID ARTHRITIS
     Dosage: 15 MG
     Dates: start: 20100203, end: 201112
  9. SULFASALAZINE [Concomitant]
     Indication: RHEUMATOID ARTHRITIS
     Dosage: 500 MG
     Dates: start: 20101201, end: 20111121
  10. PREDNISOLONE [Concomitant]
     Indication: RHEUMATOID ARTHRITIS
     Dosage: 5 MG
     Dates: start: 20110202, end: 201112
  11. TAUREDON [Concomitant]
     Indication: RHEUMATOID ARTHRITIS
     Dates: start: 201203

REACTIONS (3)
  - Urinary tract infection [Recovered/Resolved]
  - Pneumonia [Recovered/Resolved]
  - Osteoporosis [Not Recovered/Not Resolved]
